FAERS Safety Report 9603823 (Version 2)
Quarter: 2013Q4

REPORT INFORMATION
  Report Type: Spontaneous
  Country: US (occurrence: US)
  Receive Date: 20131008
  Receipt Date: 20131008
  Transmission Date: 20140711
  Serious: Yes (Other)
  Sender: FDA-Public Use
  Company Number: US-JNJFOC-20130614523

PATIENT
  Age: 77 Year
  Sex: Male
  Weight: 90.72 kg

DRUGS (14)
  1. TYLENOL [Suspect]
     Route: 048
  2. TYLENOL [Suspect]
     Indication: PAIN
     Dosage: 1 PILL 6-8 HOURS
     Route: 048
  3. WARFARIN [Suspect]
     Indication: PRODUCT USED FOR UNKNOWN INDICATION
     Dosage: 1 PILL 6-8 HOURS
     Route: 048
  4. FERROUS SULFATE [Suspect]
     Indication: MINERAL SUPPLEMENTATION
     Route: 065
  5. LASIX [Concomitant]
     Indication: PRODUCT USED FOR UNKNOWN INDICATION
     Route: 065
  6. POLTAX [Concomitant]
     Indication: NUTRITIONAL SUPPLEMENTATION
     Route: 065
  7. DIVALPROEX [Concomitant]
     Indication: PRODUCT USED FOR UNKNOWN INDICATION
     Route: 065
  8. TAMSULOSIN [Concomitant]
     Indication: PRODUCT USED FOR UNKNOWN INDICATION
     Route: 065
  9. LIPITOR [Concomitant]
     Indication: BLOOD CHOLESTEROL ABNORMAL
     Route: 065
  10. KLOR-CON [Concomitant]
     Indication: PRODUCT USED FOR UNKNOWN INDICATION
     Route: 065
  11. CITALOPRAM [Concomitant]
     Indication: PRODUCT USED FOR UNKNOWN INDICATION
     Route: 065
  12. METOPROLOL SUCCINATE [Concomitant]
     Indication: PRODUCT USED FOR UNKNOWN INDICATION
     Route: 065
  13. VITAMIN D [Concomitant]
     Indication: PRODUCT USED FOR UNKNOWN INDICATION
     Route: 065
  14. NITROSTAT [Concomitant]
     Indication: MYOCARDIAL INFARCTION
     Route: 065

REACTIONS (3)
  - Blood urine present [Recovered/Resolved]
  - Haematochezia [Recovered/Resolved]
  - Off label use [Unknown]
